FAERS Safety Report 14763820 (Version 1)
Quarter: 2018Q2

REPORT INFORMATION
  Report Type: Spontaneous
  Country: DK (occurrence: DK)
  Receive Date: 20180416
  Receipt Date: 20180416
  Transmission Date: 20180711
  Serious: Yes (Hospitalization)
  Sender: FDA-Public Use
  Company Number: DK-TEVA-2018-DK-880260

PATIENT
  Age: 64 Year
  Sex: Female
  Weight: 68 kg

DRUGS (3)
  1. EMTHEXATE [Suspect]
     Active Substance: METHOTREXATE
     Indication: RHEUMATOID ARTHRITIS
     Dosage: STYRKE: 2,5 MG
     Route: 048
     Dates: start: 20170628, end: 20170906
  2. RAMIPRIL/HYDROCHLORTHIAZID ^1A FARMA^ [Concomitant]
     Indication: HYPERTENSION
     Dosage: STYRKE: 5+25 MG
     Route: 048
     Dates: start: 20111004
  3. ATORVASTATIN ^TEVA^ [Concomitant]
     Active Substance: ATORVASTATIN
     Indication: HYPERLIPIDAEMIA
     Dosage: STYRKE: 20 MG
     Route: 048
     Dates: start: 20160412

REACTIONS (1)
  - Psychotic disorder [Recovered/Resolved]

NARRATIVE: CASE EVENT DATE: 20170907
